FAERS Safety Report 8471859-6 (Version None)
Quarter: 2012Q2

REPORT INFORMATION
  Report Type: 
  Country: None (occurrence: None)
  Receive Date: 20120627
  Receipt Date: 20120619
  Transmission Date: 20120825
  Serious: Yes (Hospitalization)
  Sender: FDA-Public Use
  Company Number: US-BAYER-2012-062376

PATIENT
  Age: 33 Year
  Sex: Female
  Weight: 87.982 kg

DRUGS (2)
  1. ALBUTEROL [Concomitant]
     Indication: ASTHMA
     Dosage: UNK UNK, PRN
     Dates: start: 20090301
  2. YAZ [Suspect]

REACTIONS (1)
  - PORTAL VEIN THROMBOSIS [None]
